FAERS Safety Report 7220397-7 (Version None)
Quarter: 2011Q1

REPORT INFORMATION
  Report Type: 
  Country: None (occurrence: None)
  Receive Date: 20110111
  Receipt Date: 20110107
  Transmission Date: 20110831
  Serious: Yes (Life-Threatening, Hospitalization)
  Sender: FDA-Public Use
  Company Number: US-US-EMD SERONO, INC.-233914J09USA

PATIENT
  Sex: Female

DRUGS (2)
  1. REBIF [Suspect]
     Indication: MULTIPLE SCLEROSIS
     Route: 058
     Dates: start: 20091030
  2. UNSPECIFIED MEDICATIONS [Concomitant]

REACTIONS (4)
  - PYREXIA [None]
  - MULTIPLE SCLEROSIS [None]
  - CEREBROVASCULAR ACCIDENT [None]
  - CONVULSION [None]
